FAERS Safety Report 23768082 (Version 1)
Quarter: 2024Q2

REPORT INFORMATION
  Report Type: Spontaneous
  Country: GB (occurrence: GB)
  Receive Date: 20240422
  Receipt Date: 20240422
  Transmission Date: 20240716
  Serious: Yes (Hospitalization, Other)
  Sender: FDA-Public Use
  Company Number: GB-CELLTRION INC.-2024GB009163

PATIENT

DRUGS (4)
  1. INFLIXIMAB [Suspect]
     Active Substance: INFLIXIMAB
     Indication: Colitis ulcerative
     Dosage: 5 MG/KG (RESCUE THERAPY)
  2. INFLIXIMAB [Suspect]
     Active Substance: INFLIXIMAB
     Dosage: 10 MG/KG (SECOND DOSE GIVEN AFTER A 10-DAY INTERVAL)
  3. COLCHICINE [Concomitant]
     Active Substance: COLCHICINE
     Indication: Myopericarditis
  4. HYDROCORTISONE [Concomitant]
     Active Substance: HYDROCORTISONE
     Indication: Colitis ulcerative
     Route: 042

REACTIONS (4)
  - Hepatocellular injury [Unknown]
  - Cytomegalovirus infection [Unknown]
  - Hypertransaminasaemia [Unknown]
  - Intentional product use issue [Unknown]
